FAERS Safety Report 25391898 (Version 3)
Quarter: 2025Q3

REPORT INFORMATION
  Report Type: Spontaneous
  Country: JP (occurrence: JP)
  Receive Date: 20250603
  Receipt Date: 20250709
  Transmission Date: 20251021
  Serious: Yes (Life-Threatening, Other)
  Sender: PFIZER
  Company Number: JP-PFIZER INC-PV202500065741

PATIENT
  Age: 74 Year
  Sex: Female
  Weight: 43 kg

DRUGS (4)
  1. LORBRENA [Suspect]
     Active Substance: LORLATINIB
     Indication: Lung adenocarcinoma
     Dosage: 100 MG, DAILY
     Route: 048
     Dates: start: 20211008
  2. LORBRENA [Suspect]
     Active Substance: LORLATINIB
     Dosage: 75MG, DAILY
     Route: 048
  3. LORBRENA [Suspect]
     Active Substance: LORLATINIB
     Dosage: 50MG, DAILY
     Route: 048
  4. CRESTOR [Concomitant]
     Active Substance: ROSUVASTATIN CALCIUM
     Indication: Hyperlipidaemia
     Dosage: 10 MG, 1X/DAY

REACTIONS (4)
  - Pericardial effusion [Recovered/Resolved]
  - Neuropathy peripheral [Recovering/Resolving]
  - Dyslipidaemia [Recovering/Resolving]
  - Condition aggravated [Recovering/Resolving]

NARRATIVE: CASE EVENT DATE: 20211011
